FAERS Safety Report 22147112 (Version 1)
Quarter: 2023Q1

REPORT INFORMATION
  Report Type: Spontaneous
  Country: US (occurrence: None)
  Receive Date: 20230327
  Receipt Date: 20230327
  Transmission Date: 20230418
  Serious: Yes (Hospitalization)
  Sender: FDA-Public Use
  Company Number: None

PATIENT
  Sex: Female

DRUGS (15)
  1. LORBRENA [Suspect]
     Active Substance: LORLATINIB
     Indication: Anaplastic large-cell lymphoma
     Dosage: FREQUENCY : DAILY;?
     Route: 048
     Dates: start: 20230307
  2. LORBRENA [Suspect]
     Active Substance: LORLATINIB
     Dosage: FREQUENCY : DAILY;?
     Route: 048
  3. ACETAMIN TAB [Concomitant]
  4. ARMOUR THYRO [Concomitant]
  5. CALCIUM 600 TAB+D [Concomitant]
  6. DEXANETHASON [Concomitant]
  7. FISH OIL [Concomitant]
     Active Substance: FISH OIL
  8. KEPPRA [Concomitant]
     Active Substance: LEVETIRACETAM
  9. METFORMIN [Concomitant]
     Active Substance: METFORMIN HYDROCHLORIDE
  10. OXYCODONE [Concomitant]
     Active Substance: OXYCODONE
  11. PENTOXIFYLLI [Concomitant]
  12. PROBIOTIC [Concomitant]
  13. SIMVASTATIN [Concomitant]
     Active Substance: SIMVASTATIN
  14. VITAMIN C [Concomitant]
     Active Substance: ASCORBIC ACID
  15. VITAMIN E [Concomitant]
     Active Substance: .ALPHA.-TOCOPHEROL

REACTIONS (1)
  - Therapy interrupted [None]
